FAERS Safety Report 9833557 (Version 4)
Quarter: 2014Q1

REPORT INFORMATION
  Report Type: Spontaneous
  Country: ES (occurrence: ES)
  Receive Date: 20140122
  Receipt Date: 20140314
  Transmission Date: 20141002
  Serious: Yes (Hospitalization)
  Sender: FDA-Public Use
  Company Number: ES-BIOGENIDEC-2013BI116789

PATIENT
  Age: 60 Year
  Sex: Female

DRUGS (2)
  1. TYSABRI [Suspect]
     Indication: MULTIPLE SCLEROSIS
     Route: 042
     Dates: start: 20131115
  2. METHYLPREDNISOLONE [Concomitant]

REACTIONS (4)
  - Hepatitis acute [Recovered/Resolved]
  - Autoimmune hepatitis [Unknown]
  - Blood bilirubin increased [Not Recovered/Not Resolved]
  - Drug-induced liver injury [Recovered/Resolved]
